FAERS Safety Report 18997197 (Version 1)
Quarter: 2021Q1

REPORT INFORMATION
  Report Type: Spontaneous
  Country: JP (occurrence: JP)
  Receive Date: 20210311
  Receipt Date: 20210311
  Transmission Date: 20210420
  Serious: Yes (Hospitalization, Other)
  Sender: FDA-Public Use
  Company Number: JP-GLAXOSMITHKLINE-JP2021JPN057937

PATIENT
  Age: 3 Decade
  Sex: Male

DRUGS (1)
  1. BENLYSTA [Suspect]
     Active Substance: BELIMUMAB
     Dosage: UNK
     Route: 042
     Dates: end: 202003

REACTIONS (4)
  - Malaise [Unknown]
  - Nephrotic syndrome [Unknown]
  - Fatigue [Unknown]
  - Dialysis [Unknown]

NARRATIVE: CASE EVENT DATE: 2020
